FAERS Safety Report 8053339-5 (Version None)
Quarter: 2012Q1

REPORT INFORMATION
  Report Type: 
  Country: None (occurrence: None)
  Receive Date: 20120118
  Receipt Date: 20120110
  Transmission Date: 20120608
  Serious: Yes (Hospitalization)
  Sender: FDA-Public Use
  Company Number: ES-ROCHE-1031214

PATIENT
  Sex: Female

DRUGS (2)
  1. LUCENTIS [Suspect]
     Dates: end: 20111123
  2. LUCENTIS [Suspect]
     Indication: AGE-RELATED MACULAR DEGENERATION
     Route: 050

REACTIONS (2)
  - TRANSIENT ISCHAEMIC ATTACK [None]
  - CEREBRAL INFARCTION [None]
